FAERS Safety Report 10037455 (Version 2)
Quarter: 2014Q2

REPORT INFORMATION
  Report Type: Spontaneous
  Country: IT (occurrence: IT)
  Receive Date: 20140326
  Receipt Date: 20140626
  Transmission Date: 20141212
  Serious: Yes (Other)
  Sender: FDA-Public Use
  Company Number: IT-ROCHE-1371512

PATIENT
  Age: 73 Year
  Sex: Female
  Weight: 53 kg

DRUGS (3)
  1. MABTHERA [Suspect]
     Indication: NON-HODGKIN^S LYMPHOMA
     Route: 042
     Dates: start: 20140303, end: 20140303
  2. KEPPRA [Concomitant]
     Dosage: 1 TABLET EVENING
     Route: 048
  3. ASA [Concomitant]

REACTIONS (2)
  - Epilepsy [Recovered/Resolved]
  - Nausea [Recovering/Resolving]
